FAERS Safety Report 6920747-2 (Version None)
Quarter: 2010Q3

REPORT INFORMATION
  Report Type: 
  Country: None (occurrence: None)
  Receive Date: 20100804
  Receipt Date: 20100510
  Transmission Date: 20110219
  Serious: No
  Sender: FDA-Public Use
  Company Number: 2010-1587

PATIENT
  Age: 52 Year
  Sex: Male
  Weight: 111 kg

DRUGS (5)
  1. SOMATULINE DEPOT [Suspect]
     Indication: ACROMEGALY
     Dosage: 3.2143 MG (90 MG,1 IN 28D), SUBCUTANEOUS
     Route: 058
     Dates: start: 20100507
  2. HYDROCORTONE [Concomitant]
  3. SYNTHROID [Concomitant]
  4. SIMVASTATIN [Concomitant]
  5. TESTIM [Concomitant]

REACTIONS (4)
  - ABDOMINAL PAIN UPPER [None]
  - ASTHENIA [None]
  - DIARRHOEA [None]
  - SLEEP DISORDER [None]
